FAERS Safety Report 9579103 (Version 1)
Quarter: 2013Q4

REPORT INFORMATION
  Report Type: Spontaneous
  Country: US (occurrence: US)
  Receive Date: 20131001
  Receipt Date: 20131001
  Transmission Date: 20140711
  Serious: No
  Sender: FDA-Public Use
  Company Number: US-AMGEN-USASP2013016282

PATIENT
  Age: 57 Year
  Sex: Female
  Weight: 77.1 kg

DRUGS (13)
  1. ENBREL [Suspect]
     Indication: PRODUCT USED FOR UNKNOWN INDICATION
     Dosage: 50 MG, WEEKLY
     Route: 058
  2. PREDNISONE [Concomitant]
     Dosage: 1 MG, UNK
  3. CODEINE SULFATE [Concomitant]
     Dosage: 15 MG, UNK
  4. NAPRELAN [Concomitant]
     Dosage: 375 MG, UNK
  5. CITALOPRAM [Concomitant]
     Dosage: 10 MG, UNK
  6. OMEPRAZOLE [Concomitant]
     Dosage: 40 MG, UNK
  7. CRESTOR [Concomitant]
     Dosage: 10 MG, UNK
  8. ATELVIA [Concomitant]
     Dosage: UNK
  9. ZINC [Concomitant]
     Dosage: 50 MG, UNK
  10. FISH OIL [Concomitant]
     Dosage: UNK
  11. NIACIN [Concomitant]
     Dosage: 400 MG, UNK
  12. VITAMIN D                          /00107901/ [Concomitant]
     Dosage: 400 UNIT, UNK
  13. MULTIVITAMINS, PLAIN [Concomitant]
     Dosage: UNK

REACTIONS (2)
  - Injection site bruising [Unknown]
  - Exostosis [Unknown]
